FAERS Safety Report 8553839-5 (Version None)
Quarter: 2012Q3

REPORT INFORMATION
  Report Type: 
  Country: None (occurrence: None)
  Receive Date: 20120731
  Receipt Date: 20120720
  Transmission Date: 20120928
  Serious: Yes (Hospitalization, Other)
  Sender: FDA-Public Use
  Company Number: US-ELI_LILLY_AND_COMPANY-US201108001111

PATIENT
  Sex: Male

DRUGS (17)
  1. VALCYTE [Concomitant]
     Dosage: 450 MG, QD
  2. FORTEO [Suspect]
     Indication: OSTEOPOROSIS
     Dosage: 20 UG, QD
     Dates: start: 20110201, end: 20110711
  3. PROGRAF [Concomitant]
     Dosage: 1 MG, BID
  4. CALCIUM + VITAMIN D [Concomitant]
     Dosage: 600/400 2 TAB, QD
  5. FORTEO [Suspect]
     Dosage: 20 UG, QD
     Dates: start: 20110201, end: 20110711
  6. HYDROCHLOROTHIAZIDE [Concomitant]
  7. ASCORBIC ACID [Concomitant]
     Dosage: 500 DF, QD
  8. NOVOLOG [Concomitant]
  9. PREDNISONE [Concomitant]
     Dosage: 5 MG, QD
  10. ASPIRIN [Concomitant]
     Dosage: UNK, QD
  11. CELLCEPT [Concomitant]
     Dosage: 250 MG, BID
  12. ZOCOR [Concomitant]
     Dosage: 10 MG, EACH EVENING
  13. VITAMIN D [Concomitant]
     Dosage: 1000 U, QD
  14. SYNTHROID [Concomitant]
     Dosage: 137 UG, QD
  15. FORTEO [Suspect]
     Dosage: 20 UG, QD
     Dates: start: 20110701
  16. BACTRIM DS [Concomitant]
     Dosage: 1 TAB, QD
  17. DILACOR XR [Concomitant]
     Dosage: 188 MG, QD

REACTIONS (7)
  - HYPERGLYCAEMIA [None]
  - MALAISE [None]
  - CYTOMEGALOVIRUS INFECTION [None]
  - CARDIAC FAILURE [None]
  - BACK PAIN [None]
  - BLOOD COUNT ABNORMAL [None]
  - PARVOVIRUS INFECTION [None]
